FAERS Safety Report 11170989 (Version 1)
Quarter: 2015Q2

REPORT INFORMATION
  Report Type: Spontaneous
  Country: US (occurrence: US)
  Receive Date: 20150608
  Receipt Date: 20150608
  Transmission Date: 20150821
  Serious: No
  Sender: FDA-Public Use
  Company Number: US-BIOGENIDEC-2015BI076843

PATIENT
  Age: 70 Year
  Sex: Female

DRUGS (7)
  1. TECFIDERA [Suspect]
     Active Substance: DIMETHYL FUMARATE
     Indication: MULTIPLE SCLEROSIS
     Route: 048
     Dates: start: 20150514
  2. ROPINIROLE HCI [Concomitant]
  3. FENOFIBRATE. [Concomitant]
     Active Substance: FENOFIBRATE
  4. SERTRALINE HCI [Concomitant]
  5. BISOPROLOL HYDROCHLOROTHIAZIDE [Concomitant]
  6. RANITIDINE HCI [Concomitant]
  7. MECLIZINE HCI [Concomitant]

REACTIONS (1)
  - Adverse event [Unknown]
